FAERS Safety Report 5960101-3 (Version None)
Quarter: 2008Q4

REPORT INFORMATION
  Report Type: 
  Country: None (occurrence: None)
  Receive Date: 20081112
  Receipt Date: 20080819
  Transmission Date: 20090506
  Serious: Yes (Hospitalization)
  Sender: FDA-Public Use
  Company Number: US-JNJFOC-20080804406

PATIENT
  Age: 37 Year
  Sex: Female
  Weight: 99.7913 kg

DRUGS (3)
  1. MOTRIN [Suspect]
     Indication: PREMEDICATION
     Dates: start: 20080101, end: 20080708
  2. REBIF [Suspect]
     Indication: MULTIPLE SCLEROSIS
     Dosage: 44 UG, 3 IN 1 WEEK, SUBCUTANEOUS
     Route: 058
     Dates: start: 20080314, end: 20080708
  3. PROVIGIL [Suspect]
     Indication: FATIGUE
     Dosage: , 4 IN 1 WEEK
     Dates: start: 20080627, end: 20080708

REACTIONS (1)
  - HYPERSENSITIVITY [None]
